FAERS Safety Report 4927431-5 (Version None)
Quarter: 2006Q1

REPORT INFORMATION
  Report Type: 
  Country: None (occurrence: None)
  Receive Date: 20060228
  Receipt Date: 20051230
  Transmission Date: 20060701
  Serious: No
  Sender: FDA-Public Use
  Company Number: US-GLAXOSMITHKLINE-A0587311A

PATIENT
  Age: 24 Year
  Sex: Female

DRUGS (2)
  1. IMITREX [Suspect]
     Indication: DRUG USE FOR UNKNOWN INDICATION
     Route: 065
  2. BIRTH CONTROL [Concomitant]

REACTIONS (2)
  - ACCIDENTAL NEEDLE STICK [None]
  - SWELLING [None]
